FAERS Safety Report 5382794-4 (Version None)
Quarter: 2007Q3

REPORT INFORMATION
  Report Type: 
  Country: None (occurrence: None)
  Receive Date: 20070710
  Receipt Date: 20070702
  Transmission Date: 20080115
  Serious: Yes (Other)
  Sender: FDA-Public Use
  Company Number: US-AMGEN-US231186

PATIENT
  Sex: Female
  Weight: 70.4 kg

DRUGS (10)
  1. ENBREL [Suspect]
     Indication: RHEUMATOID ARTHRITIS
     Route: 058
     Dates: start: 19990101
  2. FOSAMAX [Concomitant]
     Route: 065
  3. PREMARIN [Concomitant]
     Route: 065
  4. AMITRIPTYLINE HCL [Concomitant]
     Route: 065
  5. SKELAXIN [Concomitant]
     Route: 065
  6. LIBRAX [Concomitant]
     Route: 065
  7. CELEBREX [Concomitant]
     Route: 065
  8. NEXIUM [Concomitant]
     Route: 065
  9. ATACAND [Concomitant]
     Route: 065
  10. CLONIDINE [Concomitant]
     Route: 065

REACTIONS (2)
  - CORONARY ARTERY DISEASE [None]
  - MITRAL VALVE PROLAPSE [None]
